FAERS Safety Report 7099471-4 (Version None)
Quarter: 2010Q4

REPORT INFORMATION
  Report Type: 
  Country: None (occurrence: None)
  Receive Date: 20101104
  Receipt Date: 20101021
  Transmission Date: 20110411
  Serious: Yes (Other)
  Sender: FDA-Public Use
  Company Number: 018241

PATIENT
  Sex: Female
  Weight: 79.6 kg

DRUGS (1)
  1. CIMZIA [Suspect]
     Indication: CROHN'S DISEASE
     Dosage: (400 MG, 2 SHOTS INITIAL DOSE SUBCUTANEOUS)
     Route: 058
     Dates: start: 20100901, end: 20100901

REACTIONS (3)
  - INJECTION SITE URTICARIA [None]
  - ORAL PRURITUS [None]
  - RASH [None]
